FAERS Safety Report 4819513-3 (Version None)
Quarter: 2005Q4

REPORT INFORMATION
  Report Type: 
  Country: None (occurrence: None)
  Receive Date: 20051031
  Receipt Date: 20050620
  Transmission Date: 20060501
  Serious: No
  Sender: FDA-Public Use
  Company Number: 2005PV000074

PATIENT
  Age: 35 Year
  Sex: Female
  Weight: 56.6996 kg

DRUGS (8)
  1. SYMLIN [Suspect]
     Indication: DIABETES MELLITUS INSULIN-DEPENDENT
     Dosage: 60 UG; QAM; SC; SEE IMAGE
     Route: 058
     Dates: start: 20050613
  2. NOVOLOG [Suspect]
     Indication: DIABETES MELLITUS INSULIN-DEPENDENT
  3. LANTUS [Concomitant]
  4. SYNTHROID [Concomitant]
  5. OVCON-35 [Concomitant]
  6. ZETIA [Concomitant]
  7. LISINOPRIL [Concomitant]
  8. DOXEPIN HCL [Concomitant]

REACTIONS (4)
  - BLOOD GLUCOSE INCREASED [None]
  - DRUG INEFFECTIVE [None]
  - NAUSEA [None]
  - RASH [None]
